FAERS Safety Report 22200186 (Version 1)
Quarter: 2023Q2

REPORT INFORMATION
  Report Type: Spontaneous
  Country: JP (occurrence: JP)
  Receive Date: 20230412
  Receipt Date: 20230412
  Transmission Date: 20230722
  Serious: Yes (Death, Other)
  Sender: FDA-Public Use
  Company Number: JP-BAYER-2022A024325

PATIENT
  Age: 43 Year
  Sex: Male

DRUGS (8)
  1. RIVAROXABAN [Suspect]
     Active Substance: RIVAROXABAN
     Indication: Embolism venous
     Dosage: 15 MG, BID
     Route: 048
     Dates: start: 20211022, end: 20211026
  2. RIVAROXABAN [Suspect]
     Active Substance: RIVAROXABAN
     Dosage: 15 MG, QD
     Route: 048
     Dates: start: 20211030, end: 20220129
  3. OXYGEN [Concomitant]
     Active Substance: OXYGEN
     Dosage: 10L
     Route: 055
  4. OXYGEN [Concomitant]
     Active Substance: OXYGEN
     Dosage: 4L
     Route: 055
  5. OXYGEN [Concomitant]
     Active Substance: OXYGEN
     Dosage: 10L
     Route: 055
  6. DOXAZOSIN [Concomitant]
     Active Substance: DOXAZOSIN MESYLATE
     Dosage: 1 DF, BID
  7. TRICHLORMETHIAZIDE [Concomitant]
     Active Substance: TRICHLORMETHIAZIDE
     Dosage: 1 DF, OM
  8. DIETARY SUPPLEMENT\PROBIOTICS [Concomitant]
     Active Substance: DIETARY SUPPLEMENT\PROBIOTICS NOS
     Dosage: 1 DF, TID

REACTIONS (8)
  - Soft tissue sarcoma [Fatal]
  - General physical health deterioration [Fatal]
  - Respiratory failure [Unknown]
  - Cardiovascular disorder [Unknown]
  - Pulmonary embolism [Unknown]
  - Dyspnoea [Unknown]
  - Chest pain [Unknown]
  - Oxygen saturation decreased [Unknown]

NARRATIVE: CASE EVENT DATE: 20211026
